FAERS Safety Report 5640724-1 (Version None)
Quarter: 2008Q1

REPORT INFORMATION
  Report Type: 
  Country: None (occurrence: None)
  Receive Date: 20080225
  Receipt Date: 20080207
  Transmission Date: 20080703
  Serious: Yes (Hospitalization, Other)
  Sender: FDA-Public Use
  Company Number: JPI-P-003011

PATIENT
  Age: 14 Year
  Sex: Male

DRUGS (4)
  1. LUVOX [Suspect]
     Indication: BIPOLAR I DISORDER
     Dosage: (50 MG, 1 D), ORAL
     Route: 048
  2. MILNACIPRAN (MILNACIPRAN) [Concomitant]
  3. TRAZODONE HCL [Concomitant]
  4. VALPROATE SODIUM [Concomitant]

REACTIONS (12)
  - ABNORMAL BEHAVIOUR [None]
  - ACTIVATION SYNDROME [None]
  - AFFECT LABILITY [None]
  - AGITATION [None]
  - BIPOLAR I DISORDER [None]
  - HYPOMANIA [None]
  - IMPULSIVE BEHAVIOUR [None]
  - INCORRECT DOSE ADMINISTERED [None]
  - INSOMNIA [None]
  - IRRITABILITY [None]
  - PSYCHOMOTOR HYPERACTIVITY [None]
  - RESTLESSNESS [None]
